FAERS Safety Report 8773195 (Version 1)
Quarter: 2012Q4

REPORT INFORMATION
  Report Type: 
  Country: US (occurrence: US)
  Receive Date: 20120907
  Receipt Date: 20120907
  Transmission Date: 20130627
  Serious: Yes (Other)
  Sender: FDA-Public Use
  Company Number: US-JNJFOC-20120815103

PATIENT

DRUGS (2)
  1. STELARA [Suspect]
     Indication: PSORIASIS
     Dosage: started ustekinumab 1 year, received about 4 doses
     Route: 058
  2. STELARA [Suspect]
     Indication: PSORIASIS
     Route: 058

REACTIONS (1)
  - Intraocular pressure increased [Not Recovered/Not Resolved]
